FAERS Safety Report 25659317 (Version 4)
Quarter: 2025Q4

REPORT INFORMATION
  Report Type: Report from Study
  Country: US (occurrence: US)
  Receive Date: 20250808
  Receipt Date: 20251126
  Transmission Date: 20260117
  Serious: Yes (Hospitalization)
  Sender: BAYER HEALTHCARE PHARMACEUTICALS INC.
  Company Number: US-BAYER-2025A103505

PATIENT
  Age: 52 Year
  Sex: Female
  Weight: 104.31 kg

DRUGS (20)
  1. ADEMPAS [Suspect]
     Active Substance: RIOCIGUAT
     Indication: Pulmonary arterial hypertension
     Dosage: UNK
     Dates: start: 20241018
  2. ADEMPAS [Suspect]
     Active Substance: RIOCIGUAT
     Indication: Pulmonary arterial hypertension
     Dosage: 2.5 MG, TID
     Route: 048
  3. ADEMPAS [Suspect]
     Active Substance: RIOCIGUAT
     Indication: Pulmonary arterial hypertension
     Dosage: 2.5 MG, TID
     Route: 048
  4. VITAMIN C [Concomitant]
     Active Substance: ASCORBIC ACID
  5. ATORVASTATIN CALCIUM [Concomitant]
     Active Substance: ATORVASTATIN CALCIUM
  6. COLACE [Concomitant]
     Active Substance: DOCUSATE SODIUM
  7. NALOXONE HCL [Concomitant]
     Active Substance: NALOXONE HYDROCHLORIDE
  8. POTASSIUM CHLORIDE [Concomitant]
     Active Substance: POTASSIUM CHLORIDE
  9. TRAZODONE HCL [Concomitant]
     Active Substance: TRAZODONE HYDROCHLORIDE
  10. LASIX [Concomitant]
     Active Substance: FUROSEMIDE
  11. GABAPENTIN [Concomitant]
     Active Substance: GABAPENTIN
  12. ELIQUIS [Concomitant]
     Active Substance: APIXABAN
  13. MELATONIN [Concomitant]
     Active Substance: MELATONIN
  14. OXYGEN [Concomitant]
     Active Substance: OXYGEN
  15. LIDOCAINE [Concomitant]
     Active Substance: LIDOCAINE
  16. NYSTATIN AND TRIAMCINOLONE [Concomitant]
     Active Substance: NYSTATIN\TRIAMCINOLONE ACETONIDE
  17. AMLODIPINE BESYLATE [Concomitant]
     Active Substance: AMLODIPINE BESYLATE
  18. OXYCODONE AND ACETAMINOPHEN [Concomitant]
     Active Substance: ACETAMINOPHEN\OXYCODONE HYDROCHLORIDE
  19. OZEMPIC [Concomitant]
     Active Substance: SEMAGLUTIDE
  20. IRON [Concomitant]
     Active Substance: IRON

REACTIONS (5)
  - Respiratory disorder [None]
  - Hip arthroplasty [Not Recovered/Not Resolved]
  - Hypotension [Not Recovered/Not Resolved]
  - Fluid retention [None]
  - Hypervolaemia [None]

NARRATIVE: CASE EVENT DATE: 20250101
